FAERS Safety Report 7880288-5 (Version None)
Quarter: 2011Q4

REPORT INFORMATION
  Report Type: 
  Country: None (occurrence: None)
  Receive Date: 20111101
  Receipt Date: 20111028
  Transmission Date: 20120403
  Serious: No
  Sender: FDA-Public Use
  Company Number: US-PFIZER INC-2011264555

PATIENT
  Sex: Female
  Weight: 52.154 kg

DRUGS (5)
  1. IBUPROFEN (ADVIL) [Suspect]
     Indication: ARTHRITIS
     Dosage: 200 MG, AS NEEDED
     Route: 048
     Dates: start: 20111001
  2. METOPROLOL [Concomitant]
     Dosage: 50 MG, DAILY
  3. IBUPROFEN (ADVIL) [Suspect]
     Indication: ARTHRALGIA
  4. SPIRONOLACTONE [Concomitant]
     Indication: DIURETIC THERAPY
     Dosage: 25 MG, DAILY
  5. IBUPROFEN (ADVIL) [Suspect]
     Indication: PAIN IN EXTREMITY

REACTIONS (1)
  - OEDEMA PERIPHERAL [None]
